FAERS Safety Report 5811810-8 (Version None)
Quarter: 2008Q3

REPORT INFORMATION
  Report Type: 
  Country: None (occurrence: None)
  Receive Date: 20080714
  Receipt Date: 20080624
  Transmission Date: 20090109
  Serious: Yes (Death)
  Sender: FDA-Public Use
  Company Number: MSTR-NO-0807S-0036

PATIENT
  Age: 49 Year
  Sex: Male
  Weight: 58 kg

DRUGS (2)
  1. METASTRON [Suspect]
     Indication: METASTATIC PAIN
     Dosage: 3 ML, SINGLE DOSE, I.V.
     Route: 042
     Dates: start: 20080311, end: 20080311
  2. OXYCODONE HCL [Concomitant]

REACTIONS (1)
  - CONDITION AGGRAVATED [None]
